FAERS Safety Report 4379157-7 (Version None)
Quarter: 2004Q2

REPORT INFORMATION
  Report Type: 
  Country: None (occurrence: None)
  Receive Date: 20040614
  Receipt Date: 20040602
  Transmission Date: 20050107
  Serious: Yes (Other)
  Sender: FDA-Public Use
  Company Number: NSADSS2001035880

PATIENT
  Age: 69 Year
  Sex: Female

DRUGS (6)
  1. REMICADE [Suspect]
     Indication: RHEUMATOID ARTHRITIS
     Dosage: 300 MG, 1 IN 8 WEEK, INTRAVENOUS DRIP
     Route: 041
  2. METHOTREXATE [Concomitant]
  3. VIOXX [Concomitant]
  4. PREMARIN [Concomitant]
  5. FOLIC ACID [Concomitant]
  6. ACETOMINOPHEN (PARACETAMOL) [Concomitant]

REACTIONS (2)
  - MALIGNANT MELANOMA [None]
  - NEOPLASM RECURRENCE [None]
